FAERS Safety Report 8082911-1 (Version None)
Quarter: 2012Q1

REPORT INFORMATION
  Report Type: 
  Country: None (occurrence: None)
  Receive Date: 20120127
  Receipt Date: 20110125
  Transmission Date: 20120608
  Serious: No
  Sender: FDA-Public Use
  Company Number: US-ABBOTT-11P-163-0700655-00

PATIENT
  Sex: Female
  Weight: 59.02 kg

DRUGS (5)
  1. FISH OIL [Concomitant]
     Indication: MINERAL SUPPLEMENTATION
  2. HUMIRA [Suspect]
     Indication: CROHN'S DISEASE
     Dates: start: 20100201
  3. LIALDA [Concomitant]
     Indication: CROHN'S DISEASE
  4. FIBER [Concomitant]
     Indication: MINERAL SUPPLEMENTATION
  5. MULTIPLE VITAMINS [Concomitant]
     Indication: VITAMIN SUPPLEMENTATION

REACTIONS (1)
  - INJECTION SITE HAEMORRHAGE [None]
